FAERS Safety Report 5278238-3 (Version None)
Quarter: 2007Q1

REPORT INFORMATION
  Report Type: 
  Country: None (occurrence: None)
  Receive Date: 20070328
  Receipt Date: 20070323
  Transmission Date: 20070707
  Serious: Yes (Death, Other)
  Sender: FDA-Public Use
  Company Number: US-ELI_LILLY_AND_COMPANY-US200701005679

PATIENT
  Age: 73 Year
  Sex: Female
  Weight: 27.21 kg

DRUGS (6)
  1. ZYPREXA [Suspect]
     Indication: AGITATION
     Dosage: 2.5 MG, UNK
     Dates: start: 20031101
  2. ZYPREXA [Suspect]
     Dosage: 5 MG, UNK
  3. ZYPREXA [Suspect]
     Dosage: 7.5 MG, UNK
  4. REMERON [Concomitant]
     Dosage: 40 MG, UNK
  5. SEROQUEL [Concomitant]
     Dosage: 40 MG, UNK
  6. XANAX [Concomitant]

REACTIONS (14)
  - ABASIA [None]
  - AKATHISIA [None]
  - APHASIA [None]
  - CONDITION AGGRAVATED [None]
  - DEATH [None]
  - DEPRESSION [None]
  - DYSPHAGIA [None]
  - GAIT DISTURBANCE [None]
  - GENERAL PHYSICAL HEALTH DETERIORATION [None]
  - HYPERSOMNIA [None]
  - PNEUMONIA [None]
  - SOMNOLENCE [None]
  - SPEECH DISORDER [None]
  - WEIGHT DECREASED [None]
